FAERS Safety Report 13640930 (Version 1)
Quarter: 2017Q2

REPORT INFORMATION
  Report Type: Spontaneous
  Country: US (occurrence: US)
  Receive Date: 20170612
  Receipt Date: 20170612
  Transmission Date: 20170830
  Serious: No
  Sender: FDA-Public Use
  Company Number: US-ASTRAZENECA-2017SE60341

PATIENT
  Sex: Female

DRUGS (4)
  1. SEROQUEL [Suspect]
     Active Substance: QUETIAPINE FUMARATE
     Dosage: 300.0MG UNKNOWN
     Route: 065
  2. SEROQUEL [Suspect]
     Active Substance: QUETIAPINE FUMARATE
     Dosage: SHE TOOK HER SONS SEROQUEL, SHE CUT IT IN HALF AND THEN CUT IT IN ANOTHER HALF TO MAKE 75 MILLIGR...
     Route: 048
  3. SEROQUEL [Suspect]
     Active Substance: QUETIAPINE FUMARATE
     Dosage: 100 MG UNKNOWN, MANUFACTURED BY PAR  UNKNOWN
     Route: 065
  4. SEROQUEL [Suspect]
     Active Substance: QUETIAPINE FUMARATE
     Dosage: 300.0MG UNKNOWN
     Route: 048

REACTIONS (11)
  - Dyspnoea [Unknown]
  - Hyperhidrosis [Unknown]
  - Fear [Unknown]
  - Insomnia [Unknown]
  - Intentional product misuse [Unknown]
  - Nasal congestion [Unknown]
  - Crying [Unknown]
  - Palpitations [Unknown]
  - Feeling abnormal [Unknown]
  - Adverse event [Unknown]
  - Drug ineffective [Unknown]
